FAERS Safety Report 5787673-6 (Version None)
Quarter: 2008Q2

REPORT INFORMATION
  Report Type: 
  Country: None (occurrence: None)
  Receive Date: 20080624
  Receipt Date: 20080624
  Transmission Date: 20081010
  Serious: Yes (Other)
  Sender: FDA-Public Use
  Company Number: None

PATIENT
  Age: 24 Year
  Sex: Female
  Weight: 61 kg

DRUGS (3)
  1. KALETRA [Suspect]
     Indication: HIV INFECTION
     Dosage: 400/100 MG BD ORAL
     Route: 048
     Dates: start: 20070503, end: 20080523
  2. EMTRIVA [Suspect]
     Indication: HIV INFECTION
     Dosage: 200 MG OD ORAL
     Route: 048
     Dates: start: 20071107, end: 20080522
  3. RETROVIR [Suspect]
     Indication: HIV INFECTION
     Dosage: 300 MG BD ORAL
     Route: 048
     Dates: start: 20071107, end: 20080523

REACTIONS (17)
  - ASTHENIA [None]
  - BLOODY DISCHARGE [None]
  - DRUG EXPOSURE DURING PREGNANCY [None]
  - HAEMATOCRIT DECREASED [None]
  - HAEMOGLOBIN DECREASED [None]
  - INFLUENZA [None]
  - MEAN CELL HAEMOGLOBIN INCREASED [None]
  - MEAN CELL VOLUME INCREASED [None]
  - POSTPARTUM UTERINE SUBINVOLUTION [None]
  - PREGNANCY [None]
  - PREMATURE LABOUR [None]
  - RED BLOOD CELL COUNT DECREASED [None]
  - RESPIRATORY TRACT INFECTION [None]
  - RETAINED PRODUCTS OF CONCEPTION [None]
  - UTERINE ENLARGEMENT [None]
  - VAGINAL HAEMORRHAGE [None]
  - VULVOVAGINAL DISORDER [None]
